FAERS Safety Report 5660998-0 (Version None)
Quarter: 2008Q1

REPORT INFORMATION
  Report Type: 
  Country: None (occurrence: None)
  Receive Date: 20080311
  Receipt Date: 20080228
  Transmission Date: 20080703
  Serious: Yes (Other)
  Sender: FDA-Public Use
  Company Number: US-PFIZER INC-2008019005

PATIENT
  Sex: Female
  Weight: 86.363 kg

DRUGS (12)
  1. DETROL LA [Suspect]
     Indication: INCONTINENCE
  2. ADVAIR DISKUS 100/50 [Concomitant]
  3. LASIX [Concomitant]
  4. OMEPRAZOLE [Concomitant]
  5. POTASSIUM CHLORIDE [Concomitant]
  6. SIMVASTATIN [Concomitant]
  7. BISOPROLOL FUMARATE [Concomitant]
  8. ASPIRIN [Concomitant]
  9. CALCIUM WITH VITAMIN D [Concomitant]
  10. CHONDROITIN/GLUCOSAMINE [Concomitant]
  11. MULTIVITAMIN [Concomitant]
  12. PRIMIDONE [Concomitant]

REACTIONS (2)
  - DIAPHRAGMATIC HERNIA [None]
  - GASTROOESOPHAGEAL REFLUX DISEASE [None]
